FAERS Safety Report 8175191-X (Version None)
Quarter: 2012Q1

REPORT INFORMATION
  Report Type: 
  Country: None (occurrence: None)
  Receive Date: 20120229
  Receipt Date: 20120228
  Transmission Date: 20120608
  Serious: Yes (Other)
  Sender: FDA-Public Use
  Company Number: US-PFIZER INC-2012053066

PATIENT
  Sex: Female
  Weight: 77 kg

DRUGS (12)
  1. OXYGEN [Concomitant]
     Indication: EMPHYSEMA
  2. NEURONTIN [Concomitant]
     Dosage: UNK
  3. NOVOLOG [Concomitant]
     Dosage: UNK
  4. CHANTIX [Suspect]
     Indication: SMOKING CESSATION THERAPY
     Dosage: 0.5 MG, 1X/DAY
     Route: 048
     Dates: start: 20080101, end: 20080101
  5. LISINOPRIL AND HYDROCHLOROTHIAZIDE [Concomitant]
     Indication: HYPERTENSION
     Dosage: UNK
  6. AZITHROMYCIN [Concomitant]
     Indication: EMPHYSEMA
  7. LANTUS [Concomitant]
     Dosage: UNK, 1X/DAY
  8. AZITHROMYCIN [Concomitant]
     Indication: CHRONIC OBSTRUCTIVE PULMONARY DISEASE
     Dosage: 250 MG, UNK
  9. OXYGEN [Concomitant]
     Indication: CHRONIC OBSTRUCTIVE PULMONARY DISEASE
     Dosage: UNK
  10. CHANTIX [Suspect]
     Dosage: UNK
     Dates: start: 20120227
  11. METFORMIN [Concomitant]
     Indication: DIABETES MELLITUS
     Dosage: 1000 MG, 2X/DAY
     Route: 048
  12. WELLBUTRIN [Concomitant]
     Dosage: UNK

REACTIONS (1)
  - APPARENT DEATH [None]
